FAERS Safety Report 5897548-X (Version None)
Quarter: 2008Q3

REPORT INFORMATION
  Report Type: 
  Country: None (occurrence: None)
  Receive Date: 20080916
  Receipt Date: 20080630
  Transmission Date: 20090109
  Serious: Yes (Other)
  Sender: FDA-Public Use
  Company Number: S08-USA-01008-01

PATIENT
  Age: 45 Year
  Sex: Female

DRUGS (4)
  1. CELEXA [Suspect]
     Indication: DEPRESSION
     Dosage: 20 MG (20 MG,ONCE A DAY),ORAL
     Route: 048
     Dates: start: 20080228, end: 20080301
  2. CELEXA [Suspect]
     Indication: DEPRESSION
     Dosage: 20 MG (20 MG,ONCE A DAY),ORAL
     Route: 048
     Dates: start: 20080324
  3. ZYRTEC [Concomitant]
  4. BIRTH CONTROL PILL (NOS) [Concomitant]

REACTIONS (1)
  - ANAPHYLACTOID REACTION [None]
